FAERS Safety Report 7642969-8 (Version None)
Quarter: 2011Q3

REPORT INFORMATION
  Report Type: 
  Country: None (occurrence: None)
  Receive Date: 20110728
  Receipt Date: 20110720
  Transmission Date: 20111222
  Serious: Yes (Hospitalization, Other)
  Sender: FDA-Public Use
  Company Number: US-ASTRAZENECA-2009UW00599

PATIENT
  Age: 29 Year
  Sex: Female
  Weight: 105.2 kg

DRUGS (16)
  1. FLUOXETINE [Concomitant]
     Dates: start: 20040413, end: 20060630
  2. ZYPREXA [Concomitant]
  3. TRICOR [Concomitant]
     Dosage: WITH LARGEST MEAL
     Route: 048
     Dates: start: 20060306
  4. SEROQUEL [Suspect]
     Indication: DEPRESSION
     Route: 048
     Dates: start: 20020101, end: 20060901
  5. XENICAL [Concomitant]
     Indication: WEIGHT DECREASED
     Dates: start: 20000101
  6. WELLBUTRIN [Concomitant]
     Dates: start: 20040413
  7. EFFEXOR [Concomitant]
     Dates: start: 20050101, end: 20050501
  8. NEXIUM [Concomitant]
     Dosage: BEFORE A MEAL
     Route: 048
     Dates: start: 20060307
  9. ALPRAZOLAM [Concomitant]
     Indication: ANXIETY
     Dosage: TK ONE T PO QHS AND SS T PO QD PRF
     Route: 048
     Dates: start: 20060215
  10. SEROQUEL [Suspect]
     Route: 048
     Dates: start: 20060215
  11. NEXIUM [Concomitant]
     Route: 048
     Dates: start: 20060306
  12. ALPRAZOLAM [Concomitant]
     Dosage: TAKE 1 TABLET BY MOUTH AT BED TIME AND 1/2 TABLET EVERYDAY AS NEEDED
     Route: 048
     Dates: start: 20060306
  13. SEROQUEL [Suspect]
     Route: 048
     Dates: start: 20060215
  14. NEXIUM [Concomitant]
     Indication: GASTROOESOPHAGEAL REFLUX DISEASE
     Route: 048
     Dates: start: 20060206
  15. SEROQUEL [Suspect]
     Indication: MIGRAINE
     Route: 048
     Dates: start: 20020101, end: 20060901
  16. TRAZODONE HCL [Concomitant]
     Dates: start: 20070530, end: 20071001

REACTIONS (19)
  - MASS [None]
  - DEEP VEIN THROMBOSIS [None]
  - BLOOD TRIGLYCERIDES INCREASED [None]
  - ABDOMINAL PAIN [None]
  - PAIN [None]
  - DEBRIDEMENT [None]
  - CHEST PAIN [None]
  - HYPERLIPIDAEMIA [None]
  - PANCREATITIS [None]
  - TYPE 2 DIABETES MELLITUS [None]
  - ABDOMINAL HERNIA REPAIR [None]
  - GALLBLADDER DISORDER [None]
  - IRRITABLE BOWEL SYNDROME [None]
  - SINUS DISORDER [None]
  - OBESITY [None]
  - BACK PAIN [None]
  - BLOOD CHOLESTEROL INCREASED [None]
  - COLITIS ULCERATIVE [None]
  - ARTHRALGIA [None]
